FAERS Safety Report 4562771-3 (Version None)
Quarter: 2005Q2

REPORT INFORMATION
  Report Type: 
  Country: None (occurrence: None)
  Receive Date: 20050121
  Receipt Date: 20050112
  Transmission Date: 20051028
  Serious: Yes (Hospitalization)
  Sender: FDA-Public Use
  Company Number: 2005SE00205

PATIENT
  Age: 67 Year
  Sex: Female

DRUGS (8)
  1. BLOPRESS [Suspect]
     Indication: HYPERTENSION
     Dosage: 4 MG QD PO
     Route: 048
     Dates: start: 20041117, end: 20041221
  2. FLOMOX [Concomitant]
     Indication: NASOPHARYNGITIS
     Dates: start: 20041217, end: 20041221
  3. RESPLEN [Suspect]
     Indication: NASOPHARYNGITIS
     Dates: start: 20041217, end: 20041221
  4. MEPTIN [Suspect]
     Indication: NASOPHARYNGITIS
     Dates: start: 20041217, end: 20041221
  5. MUCODYNE [Suspect]
     Indication: NASOPHARYNGITIS
     Dates: start: 20041217, end: 20041221
  6. SELBEX [Concomitant]
     Indication: NASOPHARYNGITIS
     Dates: start: 20041217, end: 20041221
  7. ONON [Suspect]
     Indication: NASOPHARYNGITIS
     Dates: start: 20041217, end: 20041221
  8. MUCOSOLVAN [Suspect]
     Indication: NASOPHARYNGITIS
     Dates: start: 20041217, end: 20041221

REACTIONS (3)
  - NASOPHARYNGITIS [None]
  - OEDEMA PERIPHERAL [None]
  - RHABDOMYOLYSIS [None]
